FAERS Safety Report 5233620-5 (Version None)
Quarter: 2007Q1

REPORT INFORMATION
  Report Type: 
  Country: None (occurrence: None)
  Receive Date: 20061208
  Receipt Date: 20060314
  Transmission Date: 20070707
  Serious: Yes (Other)
  Sender: FDA-Public Use
  Company Number: 2006UW04287

PATIENT
  Sex: Female
  Weight: 67.131 kg

DRUGS (3)
  1. CRESTOR [Suspect]
     Indication: BLOOD CHOLESTEROL INCREASED
     Dates: start: 20050801, end: 20051101
  2. DIOVAN HCT [Concomitant]
  3. ATENOLOL [Concomitant]

REACTIONS (1)
  - ALOPECIA [None]
